FAERS Safety Report 11321330 (Version 1)
Quarter: 2015Q3

REPORT INFORMATION
  Report Type: Spontaneous
  Country: JP (occurrence: JP)
  Receive Date: 20150729
  Receipt Date: 20150729
  Transmission Date: 20151125
  Serious: Yes (Other)
  Sender: FDA-Public Use
  Company Number: JP-GLAXOSMITHKLINE-JP2015JPN105858

PATIENT

DRUGS (5)
  1. VALPROATE SODIUM. [Concomitant]
     Active Substance: VALPROATE SODIUM
  2. QUETIAPINE [Concomitant]
     Active Substance: QUETIAPINE
  3. LAMICTAL [Suspect]
     Active Substance: LAMOTRIGINE
     Indication: TREMOR
  4. LAMICTAL [Suspect]
     Active Substance: LAMOTRIGINE
     Indication: PSYCHIATRIC SYMPTOM
     Route: 048
  5. STELARA [Concomitant]
     Active Substance: USTEKINUMAB
     Indication: PSORIASIS

REACTIONS (2)
  - Psoriasis [Unknown]
  - Hypogammaglobulinaemia [Unknown]
